FAERS Safety Report 4307398-3 (Version None)
Quarter: 2004Q1

REPORT INFORMATION
  Report Type: 
  Country: None (occurrence: None)
  Receive Date: 20040226
  Receipt Date: 20040218
  Transmission Date: 20041129
  Serious: Yes (Other)
  Sender: FDA-Public Use
  Company Number: 2004200083BR

PATIENT
  Sex: Female

DRUGS (3)
  1. DEPO-PROVERA [Suspect]
     Dosage: 150 MG/3 MONTHS, 1ST INJ, INTRAMUSCULAR; 150 MG/3 MONTHS, MOST RECENT INJ, INTRAMUSCULAR
     Route: 030
     Dates: start: 20031018, end: 20031018
  2. DEPO-PROVERA [Suspect]
     Dosage: 150 MG/3 MONTHS, 1ST INJ, INTRAMUSCULAR; 150 MG/3 MONTHS, MOST RECENT INJ, INTRAMUSCULAR
     Route: 030
     Dates: start: 20040115, end: 20040115
  3. LEVOTHYROXINE SODIUM [Concomitant]

REACTIONS (4)
  - AMENORRHOEA [None]
  - GASTRECTOMY [None]
  - MENORRHAGIA [None]
  - MENSTRUATION IRREGULAR [None]
